FAERS Safety Report 11504388 (Version 2)
Quarter: 2015Q4

REPORT INFORMATION
  Report Type: Spontaneous
  Country: US (occurrence: US)
  Receive Date: 20150915
  Receipt Date: 20151028
  Transmission Date: 20160304
  Serious: No
  Sender: FDA-Public Use
  Company Number: US-LEO PHARMA-236839

PATIENT
  Age: 53 Year
  Sex: Female

DRUGS (1)
  1. PICATO [Suspect]
     Active Substance: INGENOL MEBUTATE
     Indication: ACTINIC KERATOSIS
     Dates: start: 20150827, end: 20150829

REACTIONS (8)
  - Application site reaction [Recovered/Resolved]
  - Application site discharge [Recovered/Resolved]
  - Drug administration error [Unknown]
  - Application site erythema [Not Recovered/Not Resolved]
  - Application site vesicles [Recovered/Resolved]
  - Eye swelling [Recovered/Resolved]
  - Application site swelling [Recovered/Resolved]
  - Application site erosion [Recovered/Resolved]

NARRATIVE: CASE EVENT DATE: 20150827
